FAERS Safety Report 12525364 (Version 2)
Quarter: 2016Q3

REPORT INFORMATION
  Report Type: Spontaneous
  Country: TH (occurrence: TH)
  Receive Date: 20160704
  Receipt Date: 20160725
  Transmission Date: 20161109
  Serious: Yes (Hospitalization, Other)
  Sender: FDA-Public Use
  Company Number: ALCN2016TH004568

PATIENT
  Age: 66 Year
  Sex: Male

DRUGS (1)
  1. BSS [Suspect]
     Active Substance: CALCIUM CHLORIDE\MAGNESIUM CHLORIDE\POTASSIUM CHLORIDE\SODIUM ACETATE\SODIUM CHLORIDE\SODIUM CITRATE
     Indication: VITRECTOMY
     Dosage: UNK
     Route: 065
     Dates: start: 20160618, end: 20160618

REACTIONS (4)
  - Endophthalmitis [Not Recovered/Not Resolved]
  - Eye irritation [Unknown]
  - Anterior chamber cell [Unknown]
  - Eye pain [Unknown]

NARRATIVE: CASE EVENT DATE: 20160619
